FAERS Safety Report 9374118 (Version 1)
Quarter: 2013Q2

REPORT INFORMATION
  Report Type: Spontaneous
  Country: US (occurrence: US)
  Receive Date: 20130628
  Receipt Date: 20130628
  Transmission Date: 20140414
  Serious: No
  Sender: FDA-Public Use
  Company Number: US-BIOGENIDEC-2013BI056902

PATIENT
  Age: 44 Year
  Sex: Female

DRUGS (3)
  1. TYSABRI [Suspect]
     Indication: MULTIPLE SCLEROSIS
     Route: 042
     Dates: start: 20130314
  2. SOLUMEDROL [Concomitant]
     Indication: PREMEDICATION
  3. ZYRTEC [Concomitant]
     Indication: SEASONAL ALLERGY

REACTIONS (1)
  - Rash [Recovered/Resolved]
